FAERS Safety Report 12079805 (Version 3)
Quarter: 2016Q2

REPORT INFORMATION
  Report Type: Spontaneous
  Country: JP (occurrence: JP)
  Receive Date: 20160216
  Receipt Date: 20160608
  Transmission Date: 20160815
  Serious: Yes (Life-Threatening, Hospitalization)
  Sender: FDA-Public Use
  Company Number: JP-BAYER-2016-018984

PATIENT
  Age: 84 Year
  Sex: Female
  Weight: 51 kg

DRUGS (3)
  1. NEXAVAR [Suspect]
     Active Substance: SORAFENIB
     Indication: HEPATOCELLULAR CARCINOMA
     Dosage: DAILY DOSE 400 MG
     Route: 048
     Dates: start: 20160121, end: 20160122
  2. PYDOXAL [Concomitant]
     Active Substance: PYRIDOXAL
     Dosage: DAILY DOSE 60 MG
     Route: 048
     Dates: start: 20160107, end: 20160122
  3. NEXAVAR [Suspect]
     Active Substance: SORAFENIB
     Indication: HEPATOCELLULAR CARCINOMA
     Dosage: DAILY DOSE 800 MG
     Route: 048
     Dates: start: 20160107, end: 20160116

REACTIONS (5)
  - Emphysematous cystitis [Recovering/Resolving]
  - Altered state of consciousness [Recovering/Resolving]
  - Pyrexia [Recovering/Resolving]
  - Urinary bladder haemorrhage [Recovering/Resolving]
  - Malaise [Unknown]

NARRATIVE: CASE EVENT DATE: 20160122
